FAERS Safety Report 4447305-6 (Version None)
Quarter: 2004Q3

REPORT INFORMATION
  Report Type: 
  Country: None (occurrence: None)
  Receive Date: 20040813
  Receipt Date: 20040427
  Transmission Date: 20050211
  Serious: No
  Sender: FDA-Public Use
  Company Number: S04-USA-00101-01

PATIENT
  Age: 80 Year
  Sex: Female

DRUGS (5)
  1. NAMENDA [Suspect]
     Indication: DEMENTIA ALZHEIMER'S TYPE
     Dosage: 10 MG BID PO
     Route: 048
     Dates: start: 20040109, end: 20040112
  2. ARICEPT [Concomitant]
  3. ATIVAN [Concomitant]
  4. PAXIL [Concomitant]
  5. TRAZODONE HCL [Concomitant]

REACTIONS (1)
  - DELUSION [None]
